FAERS Safety Report 16823428 (Version 5)
Quarter: 2020Q3

REPORT INFORMATION
  Report Type: Spontaneous
  Country: US (occurrence: US)
  Receive Date: 20190918
  Receipt Date: 20200701
  Transmission Date: 20201102
  Serious: Yes (Other)
  Sender: FDA-Public Use
  Company Number: US-JNJFOC-20190915793

PATIENT
  Age: 24 Year
  Sex: Female
  Weight: 59.47 kg

DRUGS (15)
  1. REMICADE [Suspect]
     Active Substance: INFLIXIMAB
     Route: 042
     Dates: start: 20191004
  2. BENADRYL [Concomitant]
     Active Substance: DIPHENHYDRAMINE HYDROCHLORIDE
     Route: 048
  3. CURCUMIN [Concomitant]
     Active Substance: CURCUMIN
     Indication: ARTHROPATHY
     Route: 065
     Dates: start: 201912
  4. XYZAL [Concomitant]
     Active Substance: LEVOCETIRIZINE DIHYDROCHLORIDE
     Route: 065
  5. GLUCOSAMINE [Concomitant]
     Active Substance: GLUCOSAMINE
     Indication: ARTHROPATHY
     Route: 065
     Dates: start: 20161201
  6. CALCIUM 600+D3 [Concomitant]
     Active Substance: CALCIUM CARBONATE\VITAMIN D
     Route: 065
  7. IRON [Concomitant]
     Active Substance: IRON
     Route: 065
  8. REMICADE [Suspect]
     Active Substance: INFLIXIMAB
     Indication: CROHN^S DISEASE
     Route: 042
     Dates: start: 20190206, end: 20190221
  9. PROGESTERONE. [Concomitant]
     Active Substance: PROGESTERONE
     Route: 065
  10. ESTRADIOL. [Concomitant]
     Active Substance: ESTRADIOL
     Dosage: 12 + 014 DAYS
     Route: 065
  11. TYLENOL [Concomitant]
     Active Substance: ACETAMINOPHEN
     Route: 048
  12. METHOTREXATE. [Concomitant]
     Active Substance: METHOTREXATE
     Indication: ARTHRALGIA
     Dates: start: 20190812
  13. MESALAMINE. [Concomitant]
     Active Substance: MESALAMINE
  14. OSTEO BI?FLEX                      /01431201/ [Concomitant]
     Indication: ARTHROPATHY
     Route: 065
     Dates: start: 2016
  15. FOLIC ACID. [Concomitant]
     Active Substance: FOLIC ACID
     Indication: ARTHROPATHY
     Route: 065
     Dates: start: 20190812

REACTIONS (4)
  - Fatigue [Recovered/Resolved]
  - Crohn^s disease [Unknown]
  - Arthralgia [Recovered/Resolved]
  - Infection [Not Recovered/Not Resolved]

NARRATIVE: CASE EVENT DATE: 2019
